FAERS Safety Report 20709838 (Version 1)
Quarter: 2022Q2

REPORT INFORMATION
  Report Type: Spontaneous
  Country: NL (occurrence: NL)
  Receive Date: 20220414
  Receipt Date: 20220414
  Transmission Date: 20220721
  Serious: Yes (Other)
  Sender: FDA-Public Use
  Company Number: None

PATIENT
  Sex: Male
  Weight: 74 kg

DRUGS (2)
  1. ATORVASTATIN [Suspect]
     Active Substance: ATORVASTATIN
     Indication: Angina pectoris
     Dosage: 40 MG, 1X/DAY
     Dates: start: 201705, end: 20210801
  2. ASPIRIN [Concomitant]
     Active Substance: ASPIRIN
     Dosage: 80 MG

REACTIONS (1)
  - Polyneuropathy [Recovering/Resolving]
